FAERS Safety Report 8320980-1 (Version None)
Quarter: 2012Q2

REPORT INFORMATION
  Report Type: 
  Country: None (occurrence: None)
  Receive Date: 20120430
  Receipt Date: 20120424
  Transmission Date: 20120825
  Serious: Yes (Other)
  Sender: FDA-Public Use
  Company Number: PHHY2012AU026987

PATIENT
  Sex: Male

DRUGS (2)
  1. SANDOSTATIN LAR [Suspect]
     Dosage: 30 MG, UNK
     Route: 030
     Dates: end: 20120424
  2. SANDOSTATIN LAR [Suspect]
     Indication: CARCINOID SYNDROME
     Dosage: 30 MG, UNK
     Route: 030
     Dates: end: 20120327

REACTIONS (11)
  - HAEMOPTYSIS [None]
  - MEMORY IMPAIRMENT [None]
  - EATING DISORDER [None]
  - DECREASED APPETITE [None]
  - AGEUSIA [None]
  - DISTURBANCE IN ATTENTION [None]
  - VOMITING [None]
  - DYSPEPSIA [None]
  - SOMNOLENCE [None]
  - WEIGHT DECREASED [None]
  - DIZZINESS [None]
